FAERS Safety Report 15254672 (Version 1)
Quarter: 2018Q3

REPORT INFORMATION
  Report Type: Spontaneous
  Country: US (occurrence: US)
  Receive Date: 20180717
  Receipt Date: 20180717
  Transmission Date: 20181010
  Serious: No
  Sender: FDA-Public Use
  Company Number: None

PATIENT
  Age: 62 Year
  Sex: Female
  Weight: 64.86 kg

DRUGS (5)
  1. LIPITOR [Concomitant]
     Active Substance: ATORVASTATIN CALCIUM
  2. LISINPRIL [Concomitant]
  3. COQ10 [Concomitant]
     Active Substance: UBIDECARENONE
  4. SYNTHROID [Concomitant]
     Active Substance: LEVOTHYROXINE SODIUM
  5. HUMIRA [Suspect]
     Active Substance: ADALIMUMAB
     Indication: SERONEGATIVE ARTHRITIS
     Dates: start: 2011, end: 20180610

REACTIONS (3)
  - Visual impairment [None]
  - Blindness unilateral [None]
  - Multiple sclerosis [None]

NARRATIVE: CASE EVENT DATE: 20180416
